FAERS Safety Report 16720904 (Version 2)
Quarter: 2019Q3

REPORT INFORMATION
  Report Type: Report from Study
  Country: GT (occurrence: GT)
  Receive Date: 20190820
  Receipt Date: 20190904
  Transmission Date: 20191005
  Serious: Yes (Other)
  Sender: FDA-Public Use
  Company Number: PHHY2019GT191911

PATIENT
  Sex: Female
  Weight: 66.67 kg

DRUGS (2)
  1. GALVUS MET [Suspect]
     Active Substance: METFORMIN HYDROCHLORIDE\VILDAGLIPTIN
     Dosage: 2 DF ((METFORMIN 850 MG, VILDAGLIPTIN 50MG), BID
     Route: 048
  2. GALVUS MET [Suspect]
     Active Substance: METFORMIN HYDROCHLORIDE\VILDAGLIPTIN
     Indication: DIABETES MELLITUS
     Dosage: (METFORMIN 500 MG, VILDAGLIPTIN 50MG)
     Route: 065

REACTIONS (3)
  - Headache [Recovered/Resolved]
  - Blood glucose increased [Unknown]
  - Dry mouth [Recovered/Resolved]
